FAERS Safety Report 4979757-7 (Version None)
Quarter: 2006Q2

REPORT INFORMATION
  Report Type: 
  Country: None (occurrence: None)
  Receive Date: 20060418
  Receipt Date: 20060405
  Transmission Date: 20061013
  Serious: Yes (Other)
  Sender: FDA-Public Use
  Company Number: 2006031609

PATIENT
  Sex: Female

DRUGS (3)
  1. NEURONTIN [Suspect]
     Indication: ILL-DEFINED DISORDER
     Dates: start: 20031014
  2. AMBIEN [Suspect]
     Indication: SLEEP DISORDER
  3. LEXAPRO [Suspect]
     Indication: ILL-DEFINED DISORDER

REACTIONS (13)
  - BACK PAIN [None]
  - CONDITION AGGRAVATED [None]
  - DEPRESSED LEVEL OF CONSCIOUSNESS [None]
  - DEPRESSION [None]
  - EXOSTOSIS [None]
  - INSOMNIA [None]
  - MULTIPLE DRUG OVERDOSE ACCIDENTAL [None]
  - OFF LABEL USE [None]
  - SEDATION [None]
  - SOMNOLENCE [None]
  - SPINAL OSTEOARTHRITIS [None]
  - SUICIDAL IDEATION [None]
  - TREATMENT NONCOMPLIANCE [None]
